FAERS Safety Report 9783658 (Version 1)
Quarter: 2013Q4

REPORT INFORMATION
  Report Type: Spontaneous
  Country: US (occurrence: US)
  Receive Date: 20131226
  Receipt Date: 20131226
  Transmission Date: 20140711
  Serious: Yes (Other)
  Sender: FDA-Public Use
  Company Number: US-TEVA-452869USA

PATIENT
  Sex: Female

DRUGS (3)
  1. WARFARIN [Suspect]
  2. CELEBREX [Suspect]
  3. ASPIRIN [Suspect]

REACTIONS (1)
  - Gastric perforation [Unknown]
